FAERS Safety Report 7372050-7 (Version None)
Quarter: 2011Q1

REPORT INFORMATION
  Report Type: 
  Country: None (occurrence: None)
  Receive Date: 20110324
  Receipt Date: 20110317
  Transmission Date: 20110831
  Serious: Yes (Hospitalization, Other)
  Sender: FDA-Public Use
  Company Number: PHHY2010US66330

PATIENT
  Sex: Female

DRUGS (15)
  1. LIMBITROL [Concomitant]
     Dosage: 5 - 12.5 MG DAILY
  2. VITAMIN D [Concomitant]
     Dosage: 1000 IU, UNK
  3. FLEXERIL [Concomitant]
     Dosage: 10 MG (ONE IN THE MORNING AND ONE AT NIGHT)
  4. CLONAZEPAM [Concomitant]
     Dosage: 0.25 MG TABLET HALF IN THE MORNING, ONE AT BEDTIME
  5. METHOTREXATE [Concomitant]
     Dosage: 2.5 MG ONE EVERY MONDAY
  6. NOVANTRONE [Concomitant]
  7. KEPPRA [Concomitant]
     Dosage: 250 MG Q.H.S.,
  8. IMURAN [Concomitant]
  9. CYCLOSPORINE [Concomitant]
  10. VITAMIN B COMPLEX CAP [Concomitant]
  11. VITAMIN D [Concomitant]
  12. SIMVASTATIN [Concomitant]
     Dosage: 20 MG, QD
  13. EXTAVIA [Suspect]
     Indication: MULTIPLE SCLEROSIS
     Dosage: 0.25 MG, QOD
     Route: 058
     Dates: start: 20100506
  14. FOLIC ACID [Concomitant]
  15. KLONOPIN [Concomitant]
     Dosage: 0.5 MG, QD

REACTIONS (27)
  - INTERVERTEBRAL DISC PROTRUSION [None]
  - DYSKINESIA [None]
  - DIZZINESS [None]
  - MUSCLE SPASMS [None]
  - WALKING AID USER [None]
  - PAIN [None]
  - CERVICAL SPINE FLATTENING [None]
  - NECK PAIN [None]
  - MUSCLE STRAIN [None]
  - HYPERREFLEXIA [None]
  - VISION BLURRED [None]
  - CERVICAL SPINAL STENOSIS [None]
  - HEMIPARESIS [None]
  - OSTEOARTHRITIS [None]
  - LUMBAR RADICULOPATHY [None]
  - MEMORY IMPAIRMENT [None]
  - PARAESTHESIA [None]
  - HOFFMANN'S SIGN [None]
  - UPPER MOTOR NEURONE LESION [None]
  - GAIT DISTURBANCE [None]
  - PERONEAL NERVE PALSY [None]
  - ROAD TRAFFIC ACCIDENT [None]
  - STRESS [None]
  - AXONAL NEUROPATHY [None]
  - SPINAL OSTEOARTHRITIS [None]
  - MUSCULAR WEAKNESS [None]
  - HYPOAESTHESIA [None]
